FAERS Safety Report 8164587-8 (Version None)
Quarter: 2012Q1

REPORT INFORMATION
  Report Type: 
  Country: None (occurrence: None)
  Receive Date: 20120227
  Receipt Date: 20120213
  Transmission Date: 20120608
  Serious: Yes (Hospitalization)
  Sender: FDA-Public Use
  Company Number: JP-BRISTOL-MYERS SQUIBB COMPANY-16402109

PATIENT
  Age: 63 Year
  Sex: Female

DRUGS (3)
  1. BARACLUDE [Suspect]
     Indication: HEPATITIS B
     Route: 048
     Dates: start: 20070605
  2. LANSOPRAZOLE [Concomitant]
     Indication: GASTRITIS PROPHYLAXIS
     Dosage: CAP 6JUN07-06OCT07=30MG 6OCT07-10DEC09=15MG
     Route: 048
     Dates: start: 20070606, end: 20091210
  3. GASTROM [Concomitant]
     Indication: GASTRITIS PROPHYLAXIS
     Dosage: GRA
     Route: 048
     Dates: start: 20070606

REACTIONS (1)
  - VARICES OESOPHAGEAL [None]
